FAERS Safety Report 16590828 (Version 1)
Quarter: 2019Q3

REPORT INFORMATION
  Report Type: Spontaneous
  Country: US (occurrence: US)
  Receive Date: 20190717
  Receipt Date: 20190717
  Transmission Date: 20191004
  Serious: No
  Sender: FDA-Public Use
  Company Number: None

PATIENT
  Age: 39 Year
  Sex: Male

DRUGS (1)
  1. GABAPENTIN. [Suspect]
     Active Substance: GABAPENTIN
     Indication: INSOMNIA
     Route: 048
     Dates: start: 20190707, end: 20190716

REACTIONS (2)
  - Treatment failure [None]
  - Insomnia [None]

NARRATIVE: CASE EVENT DATE: 20190716
